FAERS Safety Report 5659068-7 (Version None)
Quarter: 2008Q1

REPORT INFORMATION
  Report Type: 
  Country: None (occurrence: None)
  Receive Date: 20080310
  Receipt Date: 20071029
  Transmission Date: 20080703
  Serious: No
  Sender: FDA-Public Use
  Company Number: US-BAYER-200713546BCC

PATIENT
  Age: 80 Year
  Sex: Female

DRUGS (3)
  1. ALEVE (CAPLET) [Suspect]
     Indication: ARTHRALGIA
     Dosage: UNIT DOSE: 220 MG
     Route: 048
     Dates: start: 20071028
  2. CAPTOPRIL [Concomitant]
  3. ACTONEL [Concomitant]

REACTIONS (1)
  - ABDOMINAL PAIN UPPER [None]
